FAERS Safety Report 12337069 (Version 1)
Quarter: 2016Q2

REPORT INFORMATION
  Report Type: Spontaneous
  Country: US (occurrence: US)
  Receive Date: 20160505
  Receipt Date: 20160505
  Transmission Date: 20160815
  Serious: Yes (Other)
  Sender: FDA-Public Use
  Company Number: PHHY2016US060679

PATIENT
  Age: 79 Year
  Sex: Female

DRUGS (1)
  1. ENTRESTO [Suspect]
     Active Substance: SACUBITRIL\VALSARTAN
     Indication: CARDIAC FAILURE CONGESTIVE
     Dosage: 24/26 MG, QD
     Route: 065
     Dates: start: 201508

REACTIONS (3)
  - Fall [Unknown]
  - Joint dislocation [Unknown]
  - Haemorrhage [Unknown]

NARRATIVE: CASE EVENT DATE: 201509
